FAERS Safety Report 4927159-1 (Version None)
Quarter: 2006Q1

REPORT INFORMATION
  Report Type: 
  Country: None (occurrence: None)
  Receive Date: 20060222
  Receipt Date: 20060214
  Transmission Date: 20060701
  Serious: Yes (Disabling)
  Sender: FDA-Public Use
  Company Number: 2006022489

PATIENT
  Age: 60 Year
  Sex: Female
  Weight: 133.8111 kg

DRUGS (2)
  1. NEURONTIN [Suspect]
     Indication: RHEUMATOID ARTHRITIS
     Dosage: 1800 MG (600 MG, 3 IN 1 D)
     Dates: start: 20040101
  2. LEVOTHYROXINE SODIUM [Concomitant]

REACTIONS (4)
  - INTERVERTEBRAL DISC DEGENERATION [None]
  - MUSCLE SPASMS [None]
  - NERVE COMPRESSION [None]
  - SPINAL OSTEOARTHRITIS [None]
